FAERS Safety Report 15719030 (Version 2)
Quarter: 2018Q4

REPORT INFORMATION
  Report Type: Spontaneous
  Country: CN (occurrence: CN)
  Receive Date: 20181213
  Receipt Date: 20181227
  Transmission Date: 20190205
  Serious: Yes (Hospitalization)
  Sender: FDA-Public Use
  Company Number: CN-SA-2018SA334854

PATIENT
  Sex: Female

DRUGS (7)
  1. STILNOX [Suspect]
     Active Substance: ZOLPIDEM TARTRATE
     Dosage: 7 DF, QD
     Route: 048
     Dates: start: 201210
  2. STILNOX [Suspect]
     Active Substance: ZOLPIDEM TARTRATE
     Dosage: 20 DF, QD
     Route: 048
     Dates: start: 201704
  3. SERTRALINE [Concomitant]
     Active Substance: SERTRALINE HYDROCHLORIDE
     Indication: DEPRESSION
     Dosage: 1-3 TABLETS/QD (SOMETIMES TOOK ONCE PER 3-4 DAYS)
     Route: 048
     Dates: start: 201004
  4. STILNOX [Suspect]
     Active Substance: ZOLPIDEM TARTRATE
     Dosage: 200 DF, QD
     Route: 048
     Dates: start: 201801
  5. STILNOX [Suspect]
     Active Substance: ZOLPIDEM TARTRATE
     Indication: INSOMNIA
     Dosage: 1 DF, QD
     Route: 048
     Dates: start: 201004
  6. STILNOX [Suspect]
     Active Substance: ZOLPIDEM TARTRATE
     Dosage: 70 DF, QD
     Route: 048
     Dates: start: 201706
  7. MIRTAZAPINE. [Concomitant]
     Active Substance: MIRTAZAPINE
     Indication: DEPRESSION
     Dosage: 1-2 TABLETS/QD (SOMETIMES TOOK ONCE PER 3-4 DAYS)
     Route: 048
     Dates: start: 201406

REACTIONS (3)
  - Drug dependence [Unknown]
  - Dyspnoea [Unknown]
  - Overdose [Unknown]

NARRATIVE: CASE EVENT DATE: 201010
